FAERS Safety Report 21417255 (Version 2)
Quarter: 2022Q4

REPORT INFORMATION
  Report Type: Spontaneous
  Country: ES (occurrence: ES)
  Receive Date: 20221006
  Receipt Date: 20221019
  Transmission Date: 20230112
  Serious: Yes (Death, Hospitalization)
  Sender: FDA-Public Use
  Company Number: ES-TEVA-2022-ES-2080309

PATIENT
  Age: 79 Year
  Sex: Male

DRUGS (2)
  1. OSELTAMIVIR [Suspect]
     Active Substance: OSELTAMIVIR
     Indication: Encephalopathy
     Route: 065
  2. METHYLPREDNISOLONE [Suspect]
     Active Substance: METHYLPREDNISOLONE
     Indication: Encephalopathy
     Dosage: 500MG FOR 5 DAYS
     Route: 040

REACTIONS (1)
  - Drug ineffective [Fatal]
